FAERS Safety Report 21259584 (Version 1)
Quarter: 2022Q3

REPORT INFORMATION
  Report Type: Spontaneous
  Country: US (occurrence: US)
  Receive Date: 20220826
  Receipt Date: 20220826
  Transmission Date: 20221027
  Serious: No
  Sender: FDA-Public Use
  Company Number: US-CELGENE-USA-20210505050

PATIENT
  Age: 64 Year
  Sex: Male
  Weight: 111.13 kg

DRUGS (12)
  1. REVLIMID [Suspect]
     Active Substance: LENALIDOMIDE
     Indication: Plasma cell myeloma
     Route: 048
     Dates: start: 201003
  2. REVLIMID [Suspect]
     Active Substance: LENALIDOMIDE
     Dosage: 25 MILLIGRAM
     Route: 048
     Dates: start: 201301
  3. REVLIMID [Suspect]
     Active Substance: LENALIDOMIDE
     Dosage: 10 MILLIGRAM
     Route: 048
     Dates: start: 201311
  4. REVLIMID [Suspect]
     Active Substance: LENALIDOMIDE
     Dosage: 5 MILLIGRAM
     Route: 048
     Dates: start: 201802
  5. REVLIMID [Suspect]
     Active Substance: LENALIDOMIDE
     Route: 048
     Dates: start: 20200921
  6. IRON [Concomitant]
     Active Substance: IRON
     Indication: Product used for unknown indication
     Dosage: FREQUENCY TEXT: NOT PROVIDED
     Route: 065
  7. VITAMINS [Concomitant]
     Active Substance: VITAMINS
     Indication: Product used for unknown indication
     Dosage: FREQUENCY TEXT: NOT PROVIDED
     Route: 065
  8. PROBIOTICS NOS [Concomitant]
     Active Substance: PROBIOTICS NOS
     Indication: Product used for unknown indication
     Dosage: FREQUENCY TEXT: NOT PROVIDED
     Route: 065
  9. ZINC [Concomitant]
     Active Substance: ZINC
     Indication: Product used for unknown indication
     Dosage: FREQUENCY TEXT: NOT PROVIDED
     Route: 065
  10. METOPROLOL [Concomitant]
     Active Substance: METOPROLOL
     Indication: Product used for unknown indication
     Dosage: FREQUENCY TEXT: NOT PROVIDED
     Route: 065
  11. SILDENAFIL [Concomitant]
     Active Substance: SILDENAFIL
     Indication: Product used for unknown indication
     Dosage: FREQUENCY TEXT: NOT PROVIDED
     Route: 065
  12. PREDNISONE [Concomitant]
     Active Substance: PREDNISONE
     Indication: Product used for unknown indication
     Dosage: FREQUENCY TEXT: NOT PROVIDED
     Route: 065

REACTIONS (10)
  - Skin atrophy [Unknown]
  - Faeces soft [Unknown]
  - Feeling hot [Unknown]
  - Sleep disorder [Unknown]
  - Platelet count decreased [Unknown]
  - Diarrhoea [Not Recovered/Not Resolved]
  - Rash [Unknown]
  - Pruritus [Recovered/Resolved]
  - Muscle spasms [Unknown]
  - Pain [Unknown]
